FAERS Safety Report 7081580-7 (Version None)
Quarter: 2010Q4

REPORT INFORMATION
  Report Type: 
  Country: None (occurrence: None)
  Receive Date: 20101103
  Receipt Date: 20101030
  Transmission Date: 20110411
  Serious: Yes (Other)
  Sender: FDA-Public Use
  Company Number: IN-BRISTOL-MYERS SQUIBB COMPANY-15363203

PATIENT

DRUGS (1)
  1. BRISTOKACIN INJ [Suspect]
     Dates: start: 20101029

REACTIONS (2)
  - HYPERHIDROSIS [None]
  - HYPOTENSION [None]
